FAERS Safety Report 8187844-8 (Version None)
Quarter: 2012Q1

REPORT INFORMATION
  Report Type: 
  Country: None (occurrence: None)
  Receive Date: 20120306
  Receipt Date: 20120227
  Transmission Date: 20120608
  Serious: Yes (Other)
  Sender: FDA-Public Use
  Company Number: US-BAYER-2011-025733

PATIENT
  Age: 42 Year
  Sex: Female

DRUGS (12)
  1. MAGNEVIST [Suspect]
     Indication: NUCLEAR MAGNETIC RESONANCE IMAGING
  2. MAGNEVIST [Suspect]
     Indication: DIAGNOSTIC PROCEDURE
  3. OPTIMARK [Suspect]
     Indication: NUCLEAR MAGNETIC RESONANCE IMAGING
  4. OXYCODONE HCL [Concomitant]
  5. TOPROL-XL [Concomitant]
  6. PHOSLO [Concomitant]
  7. OMNISCAN [Suspect]
     Indication: NUCLEAR MAGNETIC RESONANCE IMAGING
  8. OMNISCAN [Suspect]
     Indication: DIAGNOSTIC PROCEDURE
  9. DAPSONE [Concomitant]
  10. OPTIMARK [Suspect]
     Indication: DIAGNOSTIC PROCEDURE
  11. ISENTRESS [Concomitant]
  12. PREZISTA [Concomitant]

REACTIONS (4)
  - NEPHROGENIC SYSTEMIC FIBROSIS [None]
  - PAIN [None]
  - SKIN TIGHTNESS [None]
  - SKIN HYPERTROPHY [None]
